FAERS Safety Report 5213890-X (Version None)
Quarter: 2007Q1

REPORT INFORMATION
  Report Type: 
  Country: None (occurrence: None)
  Receive Date: 20070117
  Receipt Date: 20070110
  Transmission Date: 20070707
  Serious: Yes (Other)
  Sender: FDA-Public Use
  Company Number: 430030M06USA

PATIENT
  Age: 36 Year
  Sex: Male
  Weight: 79.3795 kg

DRUGS (1)
  1. NOVANTRONE (MITOXA TRONE HYDROCHLORIDE) [Suspect]
     Indication: MULTIPLE SCLEROSIS
     Dosage: 9 MG/M2, 1 IN 3 MONTHS, INTRAVENOUS
     Route: 042
     Dates: end: 20060602

REACTIONS (3)
  - CATHETER RELATED COMPLICATION [None]
  - DEEP VEIN THROMBOSIS [None]
  - VENOUS INJURY [None]
